FAERS Safety Report 6635699-2 (Version None)
Quarter: 2010Q1

REPORT INFORMATION
  Report Type: 
  Country: None (occurrence: None)
  Receive Date: 20100312
  Receipt Date: 20100312
  Transmission Date: 20100710
  Serious: Yes (Hospitalization)
  Sender: FDA-Public Use
  Company Number: None

PATIENT
  Age: 59 Year
  Sex: Male
  Weight: 112.9457 kg

DRUGS (2)
  1. IXABEPILONE [Suspect]
     Indication: COLORECTAL CANCER METASTATIC
     Dosage: 22 MG
  2. SUNITINIB 37.5 MG/DOSE [Suspect]
     Dosage: 37.5 ORAL
     Route: 048

REACTIONS (4)
  - COLON CANCER METASTATIC [None]
  - INTESTINAL PERFORATION [None]
  - PERITONITIS [None]
  - SMALL INTESTINAL OBSTRUCTION [None]
